FAERS Safety Report 19703395 (Version 1)
Quarter: 2021Q3

REPORT INFORMATION
  Report Type: Spontaneous
  Country: CH (occurrence: CH)
  Receive Date: 20210816
  Receipt Date: 20210816
  Transmission Date: 20211014
  Serious: Yes (Congenital Anomaly, Other)
  Sender: FDA-Public Use
  Company Number: CH-TOPROL-2021000168

PATIENT
  Age: 0 Day
  Sex: Female
  Weight: 3.2 kg

DRUGS (7)
  1. BELOC ZOK [Suspect]
     Active Substance: METOPROLOL SUCCINATE
     Route: 064
  2. CALCIUM [Concomitant]
     Active Substance: CALCIUM
     Dosage: 175 MCG/D 5 DAYS WEEKLY
     Route: 064
  3. EUTHYROX [Concomitant]
     Active Substance: LEVOTHYROXINE SODIUM
     Route: 064
  4. CALCIUM [Concomitant]
     Active Substance: CALCIUM
     Dosage: 150 MCG/D 2DAYS WEEKLY
     Route: 064
  5. VI DE 3 [Concomitant]
     Route: 064
  6. FOLIC ACID. [Concomitant]
     Active Substance: FOLIC ACID
     Route: 064
  7. TRITTICO [Suspect]
     Active Substance: TRAZODONE HYDROCHLORIDE
     Route: 064

REACTIONS (2)
  - Foetal exposure during pregnancy [Unknown]
  - Polydactyly [Unknown]

NARRATIVE: CASE EVENT DATE: 20210116
